FAERS Safety Report 6225232-1 (Version None)
Quarter: 2009Q2

REPORT INFORMATION
  Report Type: 
  Country: None (occurrence: None)
  Receive Date: 20090612
  Receipt Date: 20090526
  Transmission Date: 20091009
  Serious: No
  Sender: FDA-Public Use
  Company Number: US-ABBOTT-09P-163-0568086-00

PATIENT
  Sex: Male
  Weight: 172.52 kg

DRUGS (2)
  1. HUMIRA [Suspect]
     Indication: PSORIASIS
     Dates: start: 20090403
  2. HUMIRA [Suspect]
     Indication: PSORIATIC ARTHROPATHY
     Dates: start: 20090428

REACTIONS (6)
  - BLISTER [None]
  - DRUG DOSE OMISSION [None]
  - INFECTION [None]
  - LOCAL SWELLING [None]
  - OEDEMA PERIPHERAL [None]
  - PAIN [None]
